FAERS Safety Report 8992950 (Version 2)
Quarter: 2013Q3

REPORT INFORMATION
  Report Type: Spontaneous
  Country: FR (occurrence: FR)
  Receive Date: 20130102
  Receipt Date: 20130801
  Transmission Date: 20140515
  Serious: Yes (Other)
  Sender: FDA-Public Use
  Company Number: FR-009507513-1212FRA009602

PATIENT
  Age: 44 Year
  Sex: Male

DRUGS (14)
  1. ISENTRESS [Suspect]
     Indication: ANTIRETROVIRAL THERAPY
     Dosage: UNK
     Route: 048
     Dates: start: 20120713, end: 20120717
  2. ISENTRESS [Suspect]
     Dosage: UNK
     Route: 048
     Dates: start: 20120713, end: 20120717
  3. TRUVADA [Suspect]
     Indication: ANTIRETROVIRAL THERAPY
     Dosage: 1 DF, QD
     Route: 048
     Dates: start: 20120705, end: 20120707
  4. TRUVADA [Suspect]
     Dosage: 1 DF, QD
     Route: 048
     Dates: start: 20120713, end: 20120717
  5. MALOCIDE [Suspect]
     Indication: PROPHYLAXIS
     Dosage: 100 MG, UNK
     Route: 048
     Dates: start: 20120705, end: 20120717
  6. CELSENTRI [Suspect]
     Indication: ANTIRETROVIRAL THERAPY
     Dosage: UNK
     Dates: start: 20120705, end: 20120707
  7. CELSENTRI [Suspect]
     Dosage: UNK
     Dates: start: 20120713, end: 20120717
  8. REYATAZ [Suspect]
     Indication: ANTIRETROVIRAL THERAPY
     Dosage: 300 MG, UNK
     Dates: start: 20120705, end: 20120707
  9. NORVIR [Suspect]
     Indication: ANTIRETROVIRAL THERAPY
     Dosage: 100 MG, QD
     Dates: start: 20120705, end: 20120707
  10. LEDERFOLINE [Suspect]
     Dosage: UNK
     Dates: start: 20120705
  11. PENTACARINAT [Suspect]
     Indication: PROPHYLAXIS
     Dosage: UNK
     Dates: start: 20120623, end: 20120717
  12. PENTASA [Concomitant]
     Indication: COLITIS ULCERATIVE
     Dosage: 1 G, BID
     Dates: start: 201105
  13. PRIMPERAN [Concomitant]
     Dosage: UNK
     Dates: start: 20120711, end: 20120713
  14. IMODIUM [Concomitant]
     Dosage: UNK, PRN
     Dates: start: 20120711, end: 20120713

REACTIONS (7)
  - Enanthema [Recovering/Resolving]
  - Rash generalised [Recovering/Resolving]
  - Pruritus [Recovering/Resolving]
  - Pancytopenia [Recovering/Resolving]
  - Diarrhoea [Recovered/Resolved]
  - Nausea [Recovered/Resolved]
  - Jaundice [Recovered/Resolved]
